FAERS Safety Report 7571540-1 (Version None)
Quarter: 2011Q2

REPORT INFORMATION
  Report Type: 
  Country: None (occurrence: None)
  Receive Date: 20110624
  Receipt Date: 20110617
  Transmission Date: 20111010
  Serious: Yes (Other)
  Sender: FDA-Public Use
  Company Number: DE-B.I. PHARMACEUTICALS,INC./RIDGEFIELD-2011-DE-03662DE

PATIENT
  Sex: Male

DRUGS (2)
  1. GALANTAMINE HYDROBROMIDE [Suspect]
     Dosage: UNKNOWN AMOUNT
     Route: 048
  2. MICARDIS [Suspect]
     Dosage: 1X4 TABLETS
     Route: 048

REACTIONS (4)
  - HYPERTENSION [None]
  - MEDICATION ERROR [None]
  - VOMITING [None]
  - INCORRECT DOSE ADMINISTERED [None]
